FAERS Safety Report 8086887-2 (Version None)
Quarter: 2012Q1

REPORT INFORMATION
  Report Type: 
  Country: None (occurrence: None)
  Receive Date: 20120128
  Receipt Date: 20110614
  Transmission Date: 20120608
  Serious: No
  Sender: FDA-Public Use
  Company Number: US-ABBOTT-11P-163-0732381-00

PATIENT
  Age: 65 Year
  Sex: Male

DRUGS (9)
  1. POTASSIUM [Concomitant]
     Indication: PRODUCT USED FOR UNKNOWN INDICATION
     Dosage: DAILY
  2. AMLODIPINE BESYLATE [Concomitant]
     Indication: HYPERTENSION
     Dates: start: 20070101
  3. HUMIRA [Suspect]
     Indication: PSORIASIS
     Dosage: EVERY TWO WEEKS
     Dates: start: 20110502
  4. INSULIN [Concomitant]
     Indication: DIABETES MELLITUS
     Dates: start: 20070101
  5. GLIPIZIDE [Concomitant]
     Indication: DIABETES MELLITUS
     Dates: start: 20070101
  6. ACTOS [Concomitant]
     Indication: DIABETES MELLITUS
     Dates: start: 20070101
  7. METFFORMIN HYDROCHLORIDE [Concomitant]
     Indication: DIABETES MELLITUS
     Dates: start: 20070101
  8. AMLODIPINE BESYLATE [Concomitant]
     Indication: RENAL IMPAIRMENT
  9. NIACIN [Concomitant]
     Indication: BLOOD CHOLESTEROL INCREASED

REACTIONS (1)
  - PRURITUS [None]
